FAERS Safety Report 9088482 (Version 2)
Quarter: 2013Q2

REPORT INFORMATION
  Report Type: Spontaneous
  Country: CA (occurrence: CA)
  Receive Date: 20130201
  Receipt Date: 20130408
  Transmission Date: 20140414
  Serious: Yes (Death)
  Sender: FDA-Public Use
  Company Number: PHHY2013CA009263

PATIENT
  Sex: Female

DRUGS (12)
  1. AFINITOR [Suspect]
     Indication: BREAST CANCER
     Dosage: 10 MG, QD
     Route: 048
     Dates: start: 20121227, end: 20130118
  2. ACETAMINOPHEN [Concomitant]
  3. CITALOPRAM [Concomitant]
  4. DOCUSATE [Concomitant]
  5. GABAPENTIN [Concomitant]
  6. HALOPERIDOL [Concomitant]
  7. EXEMESTAN [Concomitant]
  8. SCOPOLAMINE [Concomitant]
  9. HYDROMORPHONE [Concomitant]
  10. CEPHALEN [Concomitant]
  11. BISACOLAX [Concomitant]
  12. L-THYROXINE [Concomitant]

REACTIONS (2)
  - Breast cancer [Fatal]
  - Malignant neoplasm progression [Fatal]
